FAERS Safety Report 14994615 (Version 2)
Quarter: 2018Q3

REPORT INFORMATION
  Report Type: Spontaneous
  Country: US (occurrence: US)
  Receive Date: 20180611
  Receipt Date: 20180828
  Transmission Date: 20181010
  Serious: Yes (Other)
  Sender: FDA-Public Use
  Company Number: US-BAYER-2018-108601

PATIENT
  Age: 31 Year
  Sex: Female
  Weight: 55.78 kg

DRUGS (3)
  1. MIRENA [Suspect]
     Active Substance: LEVONORGESTREL
     Indication: CONTRACEPTION
     Dosage: 20 MCG/24HR, CONT
     Route: 015
     Dates: start: 20160909, end: 20180530
  2. DIFLUCAN [Concomitant]
     Active Substance: FLUCONAZOLE
     Dosage: 1 DF, QD
     Route: 048
     Dates: start: 20160909
  3. NAPROXEN SODIUM. [Concomitant]
     Active Substance: NAPROXEN SODIUM
     Dosage: 1 DF, BID
     Dates: start: 20160909

REACTIONS (5)
  - Menstruation irregular [None]
  - Malaise [None]
  - Dyspareunia [None]
  - Pelvic pain [None]
  - Genital haemorrhage [None]
